FAERS Safety Report 7488186-6 (Version None)
Quarter: 2011Q2

REPORT INFORMATION
  Report Type: 
  Country: None (occurrence: None)
  Receive Date: 20110518
  Receipt Date: 20110505
  Transmission Date: 20111010
  Serious: Yes (Other)
  Sender: FDA-Public Use
  Company Number: PHHY2011AU38023

PATIENT
  Sex: Female

DRUGS (1)
  1. CLOZARIL [Suspect]
     Dates: start: 20101130

REACTIONS (4)
  - PANCYTOPENIA [None]
  - VIRAL INFECTION [None]
  - LYMPHADENOPATHY [None]
  - DIARRHOEA [None]
